FAERS Safety Report 6871009-3 (Version None)
Quarter: 2010Q2

REPORT INFORMATION
  Report Type: 
  Country: None (occurrence: None)
  Receive Date: 20100610
  Receipt Date: 20100324
  Transmission Date: 20101027
  Serious: No
  Sender: FDA-Public Use
  Company Number: 2010SP018559

PATIENT
  Age: 22 Year
  Sex: Female

DRUGS (1)
  1. SAPHRIS [Suspect]
     Indication: BIPOLAR DISORDER
     Dosage: 10 MG; SL
     Route: 060
     Dates: start: 20100324, end: 20100324

REACTIONS (5)
  - DIZZINESS [None]
  - FATIGUE [None]
  - HYPOAESTHESIA ORAL [None]
  - ORAL DISCOMFORT [None]
  - PARAESTHESIA ORAL [None]
